FAERS Safety Report 11282635 (Version 1)
Quarter: 2015Q3

REPORT INFORMATION
  Report Type: Spontaneous
  Country: ML (occurrence: ML)
  Receive Date: 20150720
  Receipt Date: 20150720
  Transmission Date: 20151125
  Serious: Yes (Hospitalization, Other)
  Sender: FDA-Public Use
  Company Number: PHHY2015ML075747

PATIENT
  Age: 60 Year
  Sex: Male
  Weight: 59 kg

DRUGS (3)
  1. MODURETIC 5-50 [Concomitant]
     Active Substance: AMILORIDE HYDROCHLORIDE\HYDROCHLOROTHIAZIDE
     Indication: HYPERTENSION
     Dosage: UNK UNK, QD (0.5 COMP PER DAY)
     Route: 048
     Dates: start: 2008, end: 20150311
  2. GLIVEC [Suspect]
     Active Substance: IMATINIB MESYLATE
     Indication: CHRONIC MYELOID LEUKAEMIA
     Dosage: 600 MG, UNK
     Route: 048
     Dates: start: 20080201
  3. ATENOL [Concomitant]
     Active Substance: ATENOLOL
     Indication: HYPERTENSION
     Dosage: UNK (1 COMP PER DAY)
     Route: 048
     Dates: start: 2008, end: 20150311

REACTIONS (11)
  - Gastritis erosive [Unknown]
  - White blood cell count decreased [Unknown]
  - Lung infection [Recovered/Resolved]
  - Oedema peripheral [Recovering/Resolving]
  - Hypoalbuminaemia [Unknown]
  - Monocyte count increased [Unknown]
  - Eye disorder [Unknown]
  - Malaria [Recovered/Resolved]
  - Blood creatine increased [Unknown]
  - Haemoglobin decreased [Unknown]
  - Platelet count decreased [Unknown]

NARRATIVE: CASE EVENT DATE: 20150622
